FAERS Safety Report 20315239 (Version 1)
Quarter: 2022Q1

REPORT INFORMATION
  Report Type: Other
  Country: US (occurrence: None)
  Receive Date: 20220110
  Receipt Date: 20220110
  Transmission Date: 20220423
  Serious: No
  Sender: FDA-Public Use
  Company Number: US-ROCHE-2785875

PATIENT
  Age: 30 Year
  Sex: Female

DRUGS (3)
  1. RITUXIMAB [Suspect]
     Active Substance: RITUXIMAB
     Indication: Granulomatosis with polyangiitis
     Route: 065
     Dates: start: 201902
  2. RITUXIMAB [Suspect]
     Active Substance: RITUXIMAB
     Route: 065
     Dates: start: 20200928
  3. PREDNISONE [Suspect]
     Active Substance: PREDNISONE
     Indication: Granulomatosis with polyangiitis
     Route: 065

REACTIONS (2)
  - COVID-19 [Recovered/Resolved]
  - Pharyngitis [Unknown]

NARRATIVE: CASE EVENT DATE: 20201006
